FAERS Safety Report 9500183 (Version 1)
Quarter: 2013Q3

REPORT INFORMATION
  Report Type: Spontaneous
  Country: US (occurrence: US)
  Receive Date: 20130905
  Receipt Date: 20130905
  Transmission Date: 20140515
  Serious: No
  Sender: FDA-Public Use
  Company Number: US-BAYER-2013-106525

PATIENT
  Sex: Male

DRUGS (1)
  1. LEVITRA [Suspect]
     Dosage: 20 MG, UNK
     Dates: start: 20130825

REACTIONS (4)
  - Lacrimation increased [None]
  - Headache [Not Recovered/Not Resolved]
  - Nasal congestion [None]
  - Somnolence [None]
